FAERS Safety Report 21268721 (Version 1)
Quarter: 2022Q3

REPORT INFORMATION
  Report Type: Other
  Country: GB (occurrence: GB)
  Receive Date: 20220830
  Receipt Date: 20220830
  Transmission Date: 20221027
  Serious: Yes (Life-Threatening, Other)
  Sender: FDA-Public Use
  Company Number: GB-MHRA-MED-202208171134489100-RTCMB

PATIENT

DRUGS (1)
  1. ROPINIROLE HYDROCHLORIDE [Suspect]
     Active Substance: ROPINIROLE HYDROCHLORIDE
     Indication: Restless legs syndrome
     Dosage: 2 P/N
     Route: 065
     Dates: start: 20200604, end: 20220815

REACTIONS (6)
  - Condition aggravated [Recovering/Resolving]
  - Medication error [Unknown]
  - Suicidal ideation [Unknown]
  - Sleep deficit [Unknown]
  - Loss of personal independence in daily activities [Unknown]
  - Feeling of despair [Unknown]

NARRATIVE: CASE EVENT DATE: 20210405
